FAERS Safety Report 15199415 (Version 2)
Quarter: 2018Q3

REPORT INFORMATION
  Report Type: Spontaneous
  Country: US (occurrence: US)
  Receive Date: 20180725
  Receipt Date: 20180820
  Transmission Date: 20181010
  Serious: Yes (Other)
  Sender: FDA-Public Use
  Company Number: US-VIFOR (INTERNATIONAL) INC.-VIT-2016-03842

PATIENT
  Age: 79 Year
  Sex: Male
  Weight: 69.46 kg

DRUGS (17)
  1. AMLODIPINE BESILATE [Concomitant]
     Active Substance: AMLODIPINE BESYLATE
  2. VASOTEC [Concomitant]
     Active Substance: ENALAPRIL MALEATE
  3. ZOLPIDEM TARTRATE. [Concomitant]
     Active Substance: ZOLPIDEM TARTRATE
  4. CYANOCOBALAMIN. [Concomitant]
     Active Substance: CYANOCOBALAMIN
  5. VELTASSA [Suspect]
     Active Substance: PATIROMER
     Route: 048
     Dates: start: 201708
  6. ZOCOR [Concomitant]
     Active Substance: SIMVASTATIN
  7. VELTASSA [Suspect]
     Active Substance: PATIROMER
     Indication: HYPERKALAEMIA
     Route: 048
     Dates: start: 20160506
  8. KAYEXALATE [Concomitant]
     Active Substance: SODIUM POLYSTYRENE SULFONATE
  9. VELTASSA [Suspect]
     Active Substance: PATIROMER
     Dosage: 2 PACKETS OF 8.4 GRAM
     Route: 048
     Dates: start: 20160615
  10. ACETYLSALICYLIC ACID [Concomitant]
     Active Substance: ASPIRIN
  11. CENTRUM [Concomitant]
     Active Substance: VITAMINS
  12. PYRIDOXINE HYDROCHLORIDE~~THIAMINE HYDROCHLORIDE~~RIBOFLAVIN~~NICOTINAMIDE~~CALCIUM PANTOTHENATE [Concomitant]
  13. PROCRIT [Concomitant]
     Active Substance: ERYTHROPOIETIN
  14. VELTASSA [Suspect]
     Active Substance: PATIROMER
     Route: 048
     Dates: start: 20180115
  15. COLECALCIFEROL [Concomitant]
     Active Substance: CHOLECALCIFEROL
  16. VELTASSA [Suspect]
     Active Substance: PATIROMER
     Route: 048
     Dates: start: 20170425
  17. CYTRA?2 [Concomitant]
     Active Substance: CITRIC ACID MONOHYDRATE\TRISODIUM CITRATE DIHYDRATE

REACTIONS (10)
  - Nausea [Not Recovered/Not Resolved]
  - Drug dose omission [Recovered/Resolved]
  - Blood magnesium decreased [Not Recovered/Not Resolved]
  - Weight decreased [Not Recovered/Not Resolved]
  - Nasopharyngitis [Recovered/Resolved]
  - Shoulder arthroplasty [Recovered/Resolved]
  - Constipation [Not Recovered/Not Resolved]
  - Faeces hard [Not Recovered/Not Resolved]
  - Off label use [Unknown]
  - Decreased appetite [Not Recovered/Not Resolved]

NARRATIVE: CASE EVENT DATE: 2016
